FAERS Safety Report 7442553-5 (Version None)
Quarter: 2011Q2

REPORT INFORMATION
  Report Type: 
  Country: None (occurrence: None)
  Receive Date: 20110426
  Receipt Date: 20110426
  Transmission Date: 20111010
  Serious: Yes (Disabling)
  Sender: FDA-Public Use
  Company Number: None

PATIENT
  Age: 69 Year
  Sex: Female
  Weight: 99.7913 kg

DRUGS (2)
  1. BYETTA [Suspect]
     Indication: TYPE 2 DIABETES MELLITUS
     Dosage: 5 MCG 2 TIMES PER DAY ID
     Route: 023
     Dates: start: 20110409, end: 20110418
  2. VICTOZA [Suspect]

REACTIONS (4)
  - LETHARGY [None]
  - MUSCULAR WEAKNESS [None]
  - ABASIA [None]
  - HEPATIC ENZYME INCREASED [None]
